FAERS Safety Report 21421780 (Version 1)
Quarter: 2022Q4

REPORT INFORMATION
  Report Type: Spontaneous
  Country: US (occurrence: US)
  Receive Date: 20221007
  Receipt Date: 20221007
  Transmission Date: 20230113
  Serious: No
  Sender: FDA-Public Use
  Company Number: US-SA-2022SA294042

PATIENT
  Sex: Female

DRUGS (1)
  1. DUPIXENT [Suspect]
     Active Substance: DUPILUMAB
     Indication: Dermatitis
     Dosage: 300 MG
     Route: 058

REACTIONS (4)
  - Fatigue [Unknown]
  - COVID-19 [Unknown]
  - Injection site irritation [Recovered/Resolved]
  - Drug effective for unapproved indication [Unknown]
